FAERS Safety Report 4718240-0 (Version None)
Quarter: 2005Q3

REPORT INFORMATION
  Report Type: 
  Country: None (occurrence: None)
  Receive Date: 20050718
  Receipt Date: 20050121
  Transmission Date: 20060218
  Serious: No
  Sender: FDA-Public Use
  Company Number: 2005000199

PATIENT
  Age: 76 Year
  Sex: Male

DRUGS (3)
  1. TARCEVA [Suspect]
     Indication: NON-SMALL CELL LUNG CANCER
     Dosage: 150 MG (QD), ORAL;  150 MG (QOD), ORAL
     Route: 048
     Dates: start: 20041215
  2. TARCEVA [Suspect]
     Indication: NON-SMALL CELL LUNG CANCER
     Dosage: 150 MG (QD), ORAL;  150 MG (QOD), ORAL
     Route: 048
     Dates: start: 20050101
  3. NEXIUM (ESOMAPRAZOLE) [Concomitant]

REACTIONS (11)
  - ARTHRALGIA [None]
  - COUGH [None]
  - DYSPHONIA [None]
  - FLATULENCE [None]
  - GASTROOESOPHAGEAL REFLUX DISEASE [None]
  - HAEMOPTYSIS [None]
  - HEADACHE [None]
  - INCREASED UPPER AIRWAY SECRETION [None]
  - NAIL DISORDER [None]
  - NASAL CONGESTION [None]
  - NAUSEA [None]
